FAERS Safety Report 6686241-1 (Version None)
Quarter: 2010Q2

REPORT INFORMATION
  Report Type: 
  Country: None (occurrence: None)
  Receive Date: 20100414
  Receipt Date: 20100331
  Transmission Date: 20101027
  Serious: Yes (Life-Threatening, Other)
  Sender: FDA-Public Use
  Company Number: 2010AL002125

PATIENT
  Sex: Male

DRUGS (8)
  1. METFORMIN HYDROCHLORIDE [Suspect]
     Indication: DRUG USE FOR UNKNOWN INDICATION
     Dosage: 500 MG; BID;
  2. GLYBURIDE (MICRONIZED) [Suspect]
     Indication: DRUG USE FOR UNKNOWN INDICATION
     Dosage: QD
  3. LIPITOR [Concomitant]
  4. GLUCOSAMINE [Concomitant]
  5. COQ10 [Concomitant]
  6. LANTUS [Concomitant]
  7. METOPROLOL [Concomitant]
  8. TRICOR [Concomitant]

REACTIONS (2)
  - CORONARY ARTERY OCCLUSION [None]
  - MYOCARDIAL INFARCTION [None]
